FAERS Safety Report 24929086 (Version 1)
Quarter: 2025Q1

REPORT INFORMATION
  Report Type: Spontaneous
  Country: US (occurrence: None)
  Receive Date: 20250204
  Receipt Date: 20250204
  Transmission Date: 20250408
  Serious: Yes (Hospitalization)
  Sender: FDA-CTU
  Company Number: None

PATIENT
  Age: 78 Year
  Sex: Male
  Weight: 114 kg

DRUGS (1)
  1. SULFAMETHOXAZOLE AND TRIMETHOPRIM [Suspect]
     Active Substance: SULFAMETHOXAZOLE\TRIMETHOPRIM
     Indication: Infection
     Dosage: FREQUENCY : TWICE A DAY;?
     Route: 048
     Dates: start: 20241108, end: 20241212

REACTIONS (2)
  - Acute kidney injury [None]
  - Pancytopenia [None]

NARRATIVE: CASE EVENT DATE: 20241213
